FAERS Safety Report 6106888-0 (Version None)
Quarter: 2009Q1

REPORT INFORMATION
  Report Type: 
  Country: None (occurrence: None)
  Receive Date: 20090305
  Receipt Date: 20090226
  Transmission Date: 20090719
  Serious: Yes (Hospitalization)
  Sender: FDA-Public Use
  Company Number: US024354

PATIENT
  Age: 52 Year
  Sex: Female
  Weight: 74.8435 kg

DRUGS (9)
  1. BENDAMUSTINE [Suspect]
     Indication: B-CELL LYMPHOMA
     Dosage: 70 MG/M2 DAY 2, EVERY 35 DAYS X 5 CYCLES INTRAVENOUS
     Route: 042
     Dates: start: 20080610, end: 20080716
  2. BENDAMUSTINE [Suspect]
     Indication: NON-HODGKIN'S LYMPHOMA
     Dosage: 70 MG/M2 DAY 2, EVERY 35 DAYS X 5 CYCLES INTRAVENOUS
     Route: 042
     Dates: start: 20080610, end: 20080716
  3. RITUXAN [Suspect]
     Indication: NON-HODGKIN'S LYMPHOMA
     Dosage: 375 MG/M2 EVERY 35 DAYS X 5 CYCLES INTRAVENOUS
     Route: 042
     Dates: start: 20080610, end: 20080715
  4. VELCADE [Concomitant]
  5. METFORMIN HCL [Concomitant]
  6. SIMVASTATIN [Concomitant]
  7. LASIX /0032601/ [Concomitant]
  8. NEXIUM [Concomitant]
  9. LEVAQUIN [Concomitant]

REACTIONS (12)
  - ABDOMINAL DISTENSION [None]
  - ABDOMINAL PAIN UPPER [None]
  - COUGH [None]
  - FATIGUE [None]
  - LYMPHADENOPATHY [None]
  - MYALGIA [None]
  - NEUTROPHIL COUNT DECREASED [None]
  - NOCARDIOSIS [None]
  - ORGANISING PNEUMONIA [None]
  - PAIN [None]
  - PLATELET COUNT DECREASED [None]
  - PYREXIA [None]
